FAERS Safety Report 5450336-0 (Version None)
Quarter: 2007Q3

REPORT INFORMATION
  Report Type: 
  Country: None (occurrence: None)
  Receive Date: 20070912
  Receipt Date: 20070905
  Transmission Date: 20080115
  Serious: Yes (Hospitalization)
  Sender: FDA-Public Use
  Company Number: CH-ASTRAZENECA-2007PK01850

PATIENT
  Age: 84 Year
  Sex: Female

DRUGS (5)
  1. TENORMIN [Suspect]
     Route: 048
     Dates: end: 20070310
  2. NORVASC [Concomitant]
     Route: 048
  3. CO-ENATEC [Concomitant]
     Dosage: 20MG/12.5 MG DAILY
     Route: 048
  4. ASPIRIN [Concomitant]
     Route: 048
  5. SORTIS [Concomitant]
     Route: 048

REACTIONS (2)
  - MEDICATION ERROR [None]
  - SYNCOPE [None]
